FAERS Safety Report 12146558 (Version 2)
Quarter: 2016Q2

REPORT INFORMATION
  Report Type: Spontaneous
  Country: US (occurrence: US)
  Receive Date: 20160304
  Receipt Date: 20160412
  Transmission Date: 20160815
  Serious: Yes (Hospitalization, Other)
  Sender: FDA-Public Use
  Company Number: US-SMITH AND NEPHEW, INC-2016SMT00162

PATIENT
  Age: 60 Year
  Sex: Male
  Weight: 123.36 kg

DRUGS (4)
  1. REGRANEX [Suspect]
     Active Substance: BECAPLERMIN
     Indication: SKIN ULCER
     Dosage: UNK UNK, 1X/DAY
     Route: 061
     Dates: start: 20160111, end: 20160123
  2. MULTIVITAMIN [Concomitant]
     Active Substance: VITAMINS
  3. INSULIN [Concomitant]
     Active Substance: INSULIN NOS
     Dosage: UNK, 2X/DAY
  4. UNSPECIFIED BLOOD PRESSURE PILL(S) [Concomitant]

REACTIONS (3)
  - Leg amputation [Recovered/Resolved with Sequelae]
  - Application site swelling [Recovered/Resolved with Sequelae]
  - Blood glucose increased [Unknown]

NARRATIVE: CASE EVENT DATE: 20160124
